FAERS Safety Report 7919240-X (Version None)
Quarter: 2011Q4

REPORT INFORMATION
  Report Type: 
  Country: None (occurrence: None)
  Receive Date: 20111114
  Receipt Date: 20111102
  Transmission Date: 20120403
  Serious: Yes (Other)
  Sender: FDA-Public Use
  Company Number: 2011IP000181

PATIENT
  Age: 70 Year
  Sex: Male

DRUGS (12)
  1. FAMOTIDINE [Concomitant]
  2. FISH OIL [Concomitant]
  3. COZAAR [Concomitant]
  4. NIASPAN [Concomitant]
  5. SIMVASTATIN [Concomitant]
  6. FOLIC ACID [Concomitant]
  7. METAMUCIL /00029101/ [Concomitant]
  8. ASPIRIN [Concomitant]
  9. BROMDAY (BROMFENAC OPHTHALMIC SOLUTION) 0.09% [Suspect]
     Indication: CYSTOID MACULAR OEDEMA
     Dosage: 1 GTT;QD;OPH
     Route: 047
     Dates: start: 20110318, end: 20110415
  10. BROMDAY (BROMFENAC OPHTHALMIC SOLUTION) 0.09% [Suspect]
     Indication: RETINOPEXY
     Dosage: 1 GTT;QD;OPH
     Route: 047
     Dates: start: 20110318, end: 20110415
  11. LEVOTHYROXINE SODIUM [Concomitant]
  12. MULTIVITAMIN /01229101/ [Concomitant]

REACTIONS (2)
  - CORNEAL SCAR [None]
  - ULCERATIVE KERATITIS [None]
